FAERS Safety Report 6301064-0 (Version None)
Quarter: 2009Q3

REPORT INFORMATION
  Report Type: 
  Country: None (occurrence: None)
  Receive Date: 20090807
  Receipt Date: 20080115
  Transmission Date: 20100115
  Serious: Yes (Other)
  Sender: FDA-Public Use
  Company Number: US-ASTRAZENECA-2007UW21081

PATIENT
  Age: 50 Year
  Sex: Male
  Weight: 134.3 kg

DRUGS (22)
  1. SEROQUEL [Suspect]
     Indication: PARANOIA
     Dosage: 25-800 MG
     Route: 048
     Dates: start: 20000824
  2. SEROQUEL [Suspect]
     Dosage: VARIOUS, INCLUDING BUT NOT LIMITED TO 25MG AND 300 MG
     Route: 048
     Dates: start: 20030301, end: 20070101
  3. SEROQUEL [Suspect]
     Dosage: 200 MG IN 3 BOTTLES AT NIGHT
     Route: 042
     Dates: start: 20060526
  4. ABILIFY [Concomitant]
     Dosage: 15 MG AND 30 MG
     Dates: start: 20030101, end: 20040101
  5. GEODON [Concomitant]
     Dates: start: 20010101, end: 20070101
  6. HALDOL [Concomitant]
  7. NAVANE [Concomitant]
  8. RISPERDAL [Concomitant]
     Dosage: VARIOUS, INCLUDING BUT NOT LIMITED TO 3 MG
     Dates: start: 20060101
  9. SOLIAN [Concomitant]
  10. STELAZINE [Concomitant]
  11. THORAZINE [Concomitant]
  12. TRILAFON [Concomitant]
     Dates: start: 19670101
  13. ZYPREXA [Concomitant]
     Dates: start: 19990101
  14. LEXAPRO [Concomitant]
     Dosage: VARIOUS, INCLUDING BUT NOT LIMITED TO 20 MG
     Dates: start: 20060101
  15. CLONAZEPAM [Concomitant]
     Dosage: 0.5-1 MG
     Dates: start: 19970123
  16. DEPAKOTE [Concomitant]
     Dosage: 250-2000 MG
     Dates: start: 19980712
  17. RAMERON [Concomitant]
     Dosage: 15-90 MG
     Dates: start: 19990119, end: 20060728
  18. THIOTHIXENE [Concomitant]
     Dates: start: 20001126
  19. TOPROL-XL [Concomitant]
     Dosage: 100-200 MG
     Dates: start: 20010717
  20. LISINOPRIL [Concomitant]
     Dosage: 10-20 MG
     Dates: start: 20020727
  21. TRICOR [Concomitant]
     Dosage: 145-160 MG
     Dates: start: 20031011
  22. TRILEPTAL [Concomitant]
     Dosage: 150-300 MG
     Dates: start: 20040114, end: 20060608

REACTIONS (7)
  - ANXIETY [None]
  - DIABETES MELLITUS [None]
  - DIABETIC NEUROPATHY [None]
  - OBESITY [None]
  - TARDIVE DYSKINESIA [None]
  - TYPE 2 DIABETES MELLITUS [None]
  - WEIGHT INCREASED [None]
